FAERS Safety Report 5014304-5 (Version None)
Quarter: 2006Q2

REPORT INFORMATION
  Report Type: 
  Country: None (occurrence: None)
  Receive Date: 20060414
  Receipt Date: 20060210
  Transmission Date: 20061013
  Serious: No
  Sender: FDA-Public Use
  Company Number: 2005SP004008

PATIENT
  Age: 71 Year
  Sex: Female
  Weight: 113.3993 kg

DRUGS (14)
  1. LUNESTA [Suspect]
     Indication: INSOMNIA
     Dosage: 2 MG;HS;ORAL
     Route: 048
     Dates: start: 20051025, end: 20051114
  2. VERAPAMIL [Concomitant]
  3. ASPIRIN [Concomitant]
  4. CLARITIN [Concomitant]
  5. COZAAR [Concomitant]
  6. LOZOL [Concomitant]
  7. FLOVENT [Concomitant]
  8. FLONASE [Concomitant]
  9. CELEBREX [Concomitant]
  10. FOSOMAX [Concomitant]
  11. ZETIA [Concomitant]
  12. CALCIUM WITH VITAMIN D [Concomitant]
  13. MULTIVITAMIN [Concomitant]
  14. GLUCOSAMINE [Concomitant]

REACTIONS (5)
  - HEADACHE [None]
  - HYPERHIDROSIS [None]
  - NERVOUSNESS [None]
  - OEDEMA PERIPHERAL [None]
  - TREMOR [None]
